FAERS Safety Report 13275553 (Version 1)
Quarter: 2017Q1

REPORT INFORMATION
  Report Type: Spontaneous
  Country: US (occurrence: US)
  Receive Date: 20170228
  Receipt Date: 20170228
  Transmission Date: 20170428
  Serious: No
  Sender: FDA-Public Use
  Company Number: US-TEVA-742664ACC

PATIENT
  Sex: Female

DRUGS (1)
  1. COPAXONE [Suspect]
     Active Substance: GLATIRAMER ACETATE
     Dosage: UNKNOWN FORM STRENGTH

REACTIONS (7)
  - Asthenia [Unknown]
  - Mood swings [Unknown]
  - Hypoaesthesia [Unknown]
  - Adverse event [Unknown]
  - Hepatic enzyme increased [Unknown]
  - Pain [Unknown]
  - Crying [Unknown]
